FAERS Safety Report 9236776 (Version 2)
Quarter: 2013Q2

REPORT INFORMATION
  Report Type: Spontaneous
  Country: JP (occurrence: JP)
  Receive Date: 20130417
  Receipt Date: 20130426
  Transmission Date: 20140414
  Serious: Yes (Hospitalization)
  Sender: FDA-Public Use
  Company Number: JP-MERCK-1304JPN006731

PATIENT
  Age: 80 Year
  Sex: Male

DRUGS (3)
  1. REFLEX [Suspect]
     Indication: DEPRESSION
     Dosage: 7.5 MG, QD IN THE EVENING
     Route: 048
     Dates: start: 20130318, end: 20130401
  2. DOGMATYL [Concomitant]
     Indication: DEPRESSION
     Dosage: 50 MG, BID
     Route: 048
     Dates: start: 20130318, end: 20130404
  3. MYSLEE [Concomitant]
     Indication: INSOMNIA
     Dosage: 5 MG, AT THE TIME OF SLEEP LOSS
     Route: 048
     Dates: start: 20130318, end: 20130404

REACTIONS (1)
  - Serotonin syndrome [Recovered/Resolved]
